FAERS Safety Report 8934916 (Version 2)
Quarter: 2012Q4

REPORT INFORMATION
  Report Type: Report from Study
  Country: JP (occurrence: JP)
  Receive Date: 20121129
  Receipt Date: 20121224
  Transmission Date: 20130627
  Serious: No
  Sender: FDA-Public Use
  Company Number: JP-US-EMD SERONO, INC.-7178699

PATIENT
  Sex: Female
  Weight: 92 kg

DRUGS (6)
  1. GONAL-F RFF PEN [Suspect]
     Indication: OVULATION INDUCTION
     Route: 058
     Dates: start: 20120401, end: 20120403
  2. GONAL-F RFF PEN [Suspect]
     Indication: POLYCYSTIC OVARIES
  3. HCG [Concomitant]
     Indication: OVULATION INDUCTION
     Route: 030
     Dates: start: 20120410, end: 20120410
  4. HMG [Concomitant]
     Indication: OVULATION INDUCTION
     Route: 058
     Dates: start: 20120404, end: 20120410
  5. CETROTIDE (CETRORELIX ACETATE FOR INJECTION) [Concomitant]
     Indication: OVULATION INDUCTION
     Route: 058
     Dates: start: 20120407, end: 20120408
  6. CETROTIDE (CETRORELIX ACETATE FOR INJECTION) [Concomitant]
     Route: 058
     Dates: start: 20120410, end: 20120410

REACTIONS (1)
  - Abortion missed [Recovered/Resolved]
